FAERS Safety Report 6100400-8 (Version None)
Quarter: 2009Q1

REPORT INFORMATION
  Report Type: 
  Country: None (occurrence: None)
  Receive Date: 20090227
  Receipt Date: 20090227
  Transmission Date: 20090719
  Serious: Yes (Hospitalization, Other)
  Sender: FDA-Public Use
  Company Number: None

PATIENT
  Age: 59 Year
  Sex: Female
  Weight: 105.6881 kg

DRUGS (7)
  1. ZD6474 (ZACTIMA) [Suspect]
     Indication: DISEASE RECURRENCE
     Dosage: 100MG PO/DAY
     Route: 048
  2. ZD6474 (ZACTIMA) [Suspect]
     Indication: GLIOBLASTOMA MULTIFORME
     Dosage: 100MG PO/DAY
     Route: 048
  3. KEPPRA [Suspect]
  4. DEXAMETHASONE 4MG TAB [Concomitant]
  5. LEVOTHYROXINE SODIUM [Suspect]
  6. ATENOLOL [Suspect]
  7. HYDROCHLOROTHIAZIDE [Suspect]

REACTIONS (5)
  - DEEP VEIN THROMBOSIS [None]
  - DEHYDRATION [None]
  - HAEMATOCRIT DECREASED [None]
  - HYPERGLYCAEMIA [None]
  - MUSCULAR WEAKNESS [None]
